FAERS Safety Report 4412139-5 (Version None)
Quarter: 2004Q2

REPORT INFORMATION
  Report Type: 
  Country: None (occurrence: None)
  Receive Date: 20040630
  Receipt Date: 20040324
  Transmission Date: 20050107
  Serious: No
  Sender: FDA-Public Use
  Company Number: 04P-163-0254427-00

PATIENT
  Age: 60 Year
  Sex: Female

DRUGS (9)
  1. HUMIRA [Suspect]
     Indication: RHEUMATOID ARTHRITIS
     Dosage: 40 MG, 1 IN 2 WK, SUBCUTANEOUS
     Route: 058
     Dates: start: 20030701
  2. ATORVASTATIN (ATORVASTATIN) [Suspect]
     Indication: BLOOD CHOLESTEROL INCREASED
     Dosage: 10 MG, 1 IN 1 D, PER ORAL (SEE IMAGE)
     Route: 048
     Dates: start: 20040301, end: 20040303
  3. ATORVASTATIN (ATORVASTATIN) [Suspect]
     Indication: BLOOD CHOLESTEROL INCREASED
     Dosage: 10 MG, 1 IN 1 D, PER ORAL (SEE IMAGE)
     Route: 048
     Dates: start: 20040323, end: 20040323
  4. HYDROCHLOROTHIAZIDE [Concomitant]
  5. METOPROLOL SUCCINATE [Concomitant]
  6. LEVOTHYROXINE SODIUM [Concomitant]
  7. BUCINDOLOL HYDROCHLORIDE [Concomitant]
  8. FAMOTIDINE [Concomitant]
  9. FOLIC ACID [Concomitant]

REACTIONS (3)
  - DRUG INTERACTION [None]
  - DYSURIA [None]
  - INFLUENZA LIKE ILLNESS [None]
